FAERS Safety Report 4768877-8 (Version None)
Quarter: 2005Q3

REPORT INFORMATION
  Report Type: 
  Country: None (occurrence: None)
  Receive Date: 20050914
  Receipt Date: 20050418
  Transmission Date: 20060218
  Serious: Yes (Hospitalization)
  Sender: FDA-Public Use
  Company Number: US-MERCK-0504USA03450

PATIENT
  Age: 71 Year
  Sex: Male
  Weight: 106 kg

DRUGS (4)
  1. VIOXX [Suspect]
     Indication: ARTHRITIS
     Route: 048
     Dates: start: 20020201, end: 20040601
  2. CAPTOPRIL [Concomitant]
     Route: 065
  3. TOPROL-XL [Concomitant]
     Route: 065
  4. FUROSEMIDE [Concomitant]
     Route: 065
     Dates: start: 19890101

REACTIONS (13)
  - BLOOD CHOLESTEROL INCREASED [None]
  - CARDIOMEGALY [None]
  - CHEST PAIN [None]
  - CHRONIC OBSTRUCTIVE PULMONARY DISEASE [None]
  - CORONARY ARTERY DISEASE [None]
  - CORONARY ARTERY OCCLUSION [None]
  - COUGH [None]
  - DYSPNOEA [None]
  - MYOCARDIAL INFARCTION [None]
  - NASOPHARYNGITIS [None]
  - OEDEMA PERIPHERAL [None]
  - PLEURAL EFFUSION [None]
  - WEIGHT DECREASED [None]
